FAERS Safety Report 6249322-2 (Version None)
Quarter: 2009Q2

REPORT INFORMATION
  Report Type: 
  Country: None (occurrence: None)
  Receive Date: 20090629
  Receipt Date: 20090624
  Transmission Date: 20091009
  Serious: Yes (Other)
  Sender: FDA-Public Use
  Company Number: US-ASTRAZENECA-2008UW24337

PATIENT
  Age: 586 Month
  Sex: Male
  Weight: 90.7 kg

DRUGS (7)
  1. SEROQUEL [Suspect]
     Indication: BIPOLAR DISORDER
     Dosage: 100 MG TO 300 MG
     Route: 048
     Dates: start: 20030501, end: 20060901
  2. ABILIFY [Concomitant]
     Dates: start: 20050614
  3. THORAZINE [Concomitant]
     Dates: start: 20070101
  4. ZYPREXA [Concomitant]
     Dosage: 15 MG, 20 MG
     Dates: start: 20030501, end: 20050401
  5. BUPROPION [Concomitant]
  6. TRAZODONE HCL [Concomitant]
     Dates: start: 20040101
  7. FASTING [Concomitant]

REACTIONS (2)
  - DIABETES MELLITUS [None]
  - LIGAMENT RUPTURE [None]
